FAERS Safety Report 23339595 (Version 3)
Quarter: 2024Q1

REPORT INFORMATION
  Report Type: Spontaneous
  Country: US (occurrence: None)
  Receive Date: 20231226
  Receipt Date: 20240116
  Transmission Date: 20240409
  Serious: Yes (Hospitalization, Other)
  Sender: FDA-Public Use
  Company Number: 2023A291317

PATIENT
  Age: 27020 Day
  Sex: Male
  Weight: 68 kg

DRUGS (2)
  1. LYNPARZA [Suspect]
     Active Substance: OLAPARIB
     Indication: Mesothelioma
     Route: 048
     Dates: start: 20230201
  2. OMEPRAZOLE [Suspect]
     Active Substance: OMEPRAZOLE
     Route: 048

REACTIONS (5)
  - Pneumonia [Recovering/Resolving]
  - Pericardial effusion [Recovering/Resolving]
  - Pleural effusion [Recovering/Resolving]
  - Hyponatraemia [Recovering/Resolving]
  - Aortic valve calcification [Unknown]

NARRATIVE: CASE EVENT DATE: 20231219
